FAERS Safety Report 8641799 (Version 2)
Quarter: 2013Q1

REPORT INFORMATION
  Report Type: Spontaneous
  Country: US (occurrence: US)
  Receive Date: 20120628
  Receipt Date: 20130226
  Transmission Date: 20140127
  Serious: No
  Sender: FDA-Public Use
  Company Number: US-ASTRAZENECA-2011SE14514

PATIENT
  Age: 76 Year
  Sex: Male

DRUGS (3)
  1. TOPROL XL [Suspect]
     Route: 048
     Dates: start: 1998
  2. TOPROL XL [Suspect]
     Dosage: GENERIC
     Route: 048
  3. VERAPAMIL [Concomitant]

REACTIONS (7)
  - Adverse drug reaction [Unknown]
  - Sleep disorder due to a general medical condition [Unknown]
  - Heart rate increased [Unknown]
  - Cardiac valve disease [Unknown]
  - Initial insomnia [Unknown]
  - Drug effect incomplete [Unknown]
  - Drug dose omission [Unknown]
